FAERS Safety Report 17556694 (Version 1)
Quarter: 2020Q1

REPORT INFORMATION
  Report Type: Spontaneous
  Country: US (occurrence: US)
  Receive Date: 20200311
  Receipt Date: 20200311
  Transmission Date: 20200409
  Serious: No
  Sender: FDA-Public Use
  Company Number: None

PATIENT
  Age: 89 Year
  Sex: Male
  Weight: 85 kg

DRUGS (1)
  1. MEGESTROL (MEGESTROL ACETATE 40MG TAB ) [Suspect]
     Active Substance: MEGESTROL
     Indication: PROSTATE CANCER
     Route: 048
     Dates: start: 20190507, end: 20190514

REACTIONS (1)
  - Urinary retention [None]

NARRATIVE: CASE EVENT DATE: 20190514
